FAERS Safety Report 11767795 (Version 3)
Quarter: 2016Q1

REPORT INFORMATION
  Report Type: Spontaneous
  Country: US (occurrence: US)
  Receive Date: 20151123
  Receipt Date: 20160128
  Transmission Date: 20160525
  Serious: No
  Sender: FDA-Public Use
  Company Number: US-GLAXOSMITHKLINE-US2015164549

PATIENT
  Age: 62 Year
  Sex: Male

DRUGS (1)
  1. NICORETTE FRUIT CHILL [Suspect]
     Active Substance: NICOTINE
     Indication: SMOKING CESSATION THERAPY
     Dosage: 2 MG, UNK
     Dates: start: 2012, end: 20151112

REACTIONS (9)
  - Ill-defined disorder [Recovered/Resolved]
  - Oral mucosal blistering [Not Recovered/Not Resolved]
  - Mouth swelling [Not Recovered/Not Resolved]
  - Oral pain [Unknown]
  - Hypersensitivity [Not Recovered/Not Resolved]
  - Product quality issue [Unknown]
  - Gingival blister [Not Recovered/Not Resolved]
  - Lip blister [Not Recovered/Not Resolved]
  - Decreased appetite [Recovered/Resolved]

NARRATIVE: CASE EVENT DATE: 20151112
